FAERS Safety Report 6136184-7 (Version None)
Quarter: 2009Q1

REPORT INFORMATION
  Report Type: 
  Country: None (occurrence: None)
  Receive Date: 20090330
  Receipt Date: 20090225
  Transmission Date: 20090719
  Serious: No
  Sender: FDA-Public Use
  Company Number: US-BAYER-200914253NA

PATIENT
  Age: 48 Year
  Sex: Female
  Weight: 68 kg

DRUGS (3)
  1. YAZ [Suspect]
     Indication: CONTRACEPTION
     Route: 048
     Dates: start: 20070101
  2. ASCOL [Concomitant]
     Dosage: UNIT DOSE: 400 MG
  3. TOPROL-XL [Concomitant]
     Dosage: UNIT DOSE: 50 MG

REACTIONS (1)
  - MUSCLE SPASMS [None]
